FAERS Safety Report 9417901 (Version 1)
Quarter: 2013Q3

REPORT INFORMATION
  Report Type: Report from Study
  Country: IT (occurrence: IT)
  Receive Date: 20130724
  Receipt Date: 20130724
  Transmission Date: 20140515
  Serious: Yes (Other)
  Sender: FDA-Public Use
  Company Number: IT-BAXTER-2013BAX028026

PATIENT
  Sex: 0

DRUGS (4)
  1. ENDOXAN BAXTER [Suspect]
     Indication: B-CELL LYMPHOMA
     Route: 042
  2. VINCRISTINE /00078802/ [Suspect]
     Indication: B-CELL LYMPHOMA
     Route: 042
  3. PREDNISONE /00044702/ [Suspect]
     Indication: B-CELL LYMPHOMA
     Route: 048
  4. RITUXIMAB [Suspect]
     Indication: B-CELL LYMPHOMA
     Route: 042

REACTIONS (2)
  - Second primary malignancy [Unknown]
  - Colon cancer [Unknown]
